FAERS Safety Report 15077339 (Version 1)
Quarter: 2018Q2

REPORT INFORMATION
  Report Type: Report from Study
  Country: US (occurrence: US)
  Receive Date: 20180627
  Receipt Date: 20180627
  Transmission Date: 20180711
  Serious: Yes (Death, Other)
  Sender: FDA-Public Use
  Company Number: US-ASTRAZENECA-2017SE31150

PATIENT
  Age: 20633 Day
  Sex: Male

DRUGS (5)
  1. OLANZAPINE. [Concomitant]
     Active Substance: OLANZAPINE
  2. TAGRISSO [Suspect]
     Active Substance: OSIMERTINIB
     Indication: LUNG NEOPLASM MALIGNANT
     Route: 048
     Dates: start: 20170105
  3. LEVETIRACETAM. [Concomitant]
     Active Substance: LEVETIRACETAM
  4. KEPPRA [Concomitant]
     Active Substance: LEVETIRACETAM
  5. TAGRISSO [Suspect]
     Active Substance: OSIMERTINIB
     Indication: LUNG NEOPLASM MALIGNANT
     Route: 048
     Dates: start: 20170104

REACTIONS (13)
  - Death [Fatal]
  - Fall [Unknown]
  - Weight decreased [Unknown]
  - Orthostatic hypotension [Unknown]
  - Dehydration [Unknown]
  - Head injury [Unknown]
  - Drug dose omission [Unknown]
  - Metastases to central nervous system [Unknown]
  - Blood glucose decreased [Unknown]
  - Dizziness [Unknown]
  - Dysphonia [Unknown]
  - Cough [Unknown]
  - Wrong drug [Unknown]

NARRATIVE: CASE EVENT DATE: 20171108
